FAERS Safety Report 16894434 (Version 1)
Quarter: 2019Q4

REPORT INFORMATION
  Report Type: Spontaneous
  Country: US (occurrence: US)
  Receive Date: 20191008
  Receipt Date: 20191008
  Transmission Date: 20200122
  Serious: No
  Sender: FDA-Public Use
  Company Number: US-INDIVIOR US-INDV-114263-2018

PATIENT
  Age: 53 Year
  Sex: Female

DRUGS (1)
  1. SUBOXONE [Suspect]
     Active Substance: BUPRENORPHINE HYDROCHLORIDE\NALOXONE HYDROCHLORIDE
     Indication: DRUG DEPENDENCE
     Dosage: 8 MG, THREE 8 MG FILMS PER DAY
     Route: 060
     Dates: start: 2008

REACTIONS (5)
  - Fatigue [Unknown]
  - Therapy cessation [Recovered/Resolved]
  - Adverse event [Unknown]
  - Memory impairment [Unknown]
  - Personality disorder [Unknown]
